FAERS Safety Report 7994118-4 (Version None)
Quarter: 2011Q4

REPORT INFORMATION
  Report Type: 
  Country: None (occurrence: None)
  Receive Date: 20111220
  Receipt Date: 20111207
  Transmission Date: 20120403
  Serious: Yes (Other)
  Sender: FDA-Public Use
  Company Number: AU-UCBSA-047431

PATIENT
  Age: 24 Hour
  Sex: Female
  Weight: 2.4 kg

DRUGS (10)
  1. PHENYTOIN [Suspect]
     Route: 064
     Dates: start: 20110101, end: 20110301
  2. KEPPRA [Suspect]
     Route: 064
     Dates: start: 20110101, end: 20110101
  3. KEPPRA [Suspect]
     Route: 064
     Dates: start: 20110315, end: 20110301
  4. CLOBAZAM [Suspect]
     Indication: EPILEPSY
     Route: 064
     Dates: start: 20110101, end: 20110101
  5. PHENYTOIN [Suspect]
     Dosage: LOADING DOSE 300 MG
     Route: 064
     Dates: start: 20110921, end: 20110901
  6. KEPPRA [Suspect]
     Route: 064
     Dates: start: 20110301, end: 20110101
  7. KEPPRA [Suspect]
     Indication: EPILEPSY
     Dosage: PLAN TO TAPER AND STOP OVER NEXT 4 WEEKS
     Route: 064
     Dates: start: 20110101, end: 20110101
  8. KEPPRA [Suspect]
     Route: 064
     Dates: start: 20110220, end: 20110307
  9. PHENYTOIN [Suspect]
     Indication: EPILEPSY
     Route: 064
     Dates: start: 20110101, end: 20110220
  10. CLONAZEPAM [Concomitant]
     Indication: EPILEPSY
     Route: 064
     Dates: start: 20110901, end: 20110928

REACTIONS (2)
  - PREMATURE BABY [None]
  - FOETAL EXPOSURE DURING PREGNANCY [None]
